FAERS Safety Report 18296891 (Version 1)
Quarter: 2020Q3

REPORT INFORMATION
  Report Type: Spontaneous
  Country: US (occurrence: US)
  Receive Date: 20200922
  Receipt Date: 20200922
  Transmission Date: 20201103
  Serious: Yes (Disabling, Other)
  Sender: FDA-Public Use
  Company Number: US-PFIZER INC-2020361763

PATIENT
  Age: 48 Year
  Sex: Female
  Weight: 110.22 kg

DRUGS (9)
  1. CELECOXIB. [Suspect]
     Active Substance: CELECOXIB
     Indication: HYPOTONIA
  2. CELECOXIB. [Suspect]
     Active Substance: CELECOXIB
     Indication: BACK DISORDER
  3. CELECOXIB. [Suspect]
     Active Substance: CELECOXIB
     Indication: LUMBAR RADICULOPATHY
  4. CELECOXIB. [Suspect]
     Active Substance: CELECOXIB
     Indication: FIBROMYALGIA
  5. CELECOXIB. [Suspect]
     Active Substance: CELECOXIB
     Indication: ARTHRALGIA
  6. CELECOXIB. [Suspect]
     Active Substance: CELECOXIB
     Indication: INTERVERTEBRAL DISC DEGENERATION
  7. CELECOXIB. [Suspect]
     Active Substance: CELECOXIB
     Indication: NEURALGIA
     Dosage: 200 MG, 2X/DAY
     Route: 048
  8. CELECOXIB. [Suspect]
     Active Substance: CELECOXIB
     Indication: OBESITY
  9. CELECOXIB. [Suspect]
     Active Substance: CELECOXIB
     Indication: NEUROPATHY PERIPHERAL

REACTIONS (4)
  - Blindness [Not Recovered/Not Resolved]
  - Drug ineffective [Unknown]
  - Off label use [Unknown]
  - Product use in unapproved indication [Unknown]

NARRATIVE: CASE EVENT DATE: 2005
